FAERS Safety Report 8364355-8 (Version None)
Quarter: 2012Q2

REPORT INFORMATION
  Report Type: 
  Country: None (occurrence: None)
  Receive Date: 20120516
  Receipt Date: 20120514
  Transmission Date: 20120825
  Serious: Yes (Other)
  Sender: FDA-Public Use
  Company Number: US-BAYER-2012-047585

PATIENT
  Age: 28 Year
  Sex: Female

DRUGS (3)
  1. YAZ [Suspect]
     Dosage: UNK
     Dates: start: 20080601, end: 20081101
  2. YASMIN [Suspect]
     Dosage: UNK
     Dates: start: 20080601, end: 20081101
  3. DROSPIRENONE AND ETHINYL ESTRADIOL [Suspect]
     Dosage: UNK
     Dates: start: 20080601, end: 20081101

REACTIONS (8)
  - INJURY [None]
  - PAIN [None]
  - ANHEDONIA [None]
  - MENTAL DISORDER [None]
  - THROMBOSIS [None]
  - EMOTIONAL DISTRESS [None]
  - ANXIETY [None]
  - FEAR [None]
